FAERS Safety Report 19468136 (Version 7)
Quarter: 2022Q1

REPORT INFORMATION
  Report Type: Report from Study
  Country: US (occurrence: US)
  Receive Date: 20210628
  Receipt Date: 20220211
  Transmission Date: 20220423
  Serious: Yes (Other)
  Sender: FDA-Public Use
  Company Number: US-NOVARTISPH-NVSC2021US135913

PATIENT
  Age: 63 Year
  Sex: Male

DRUGS (1)
  1. ENTRESTO [Suspect]
     Active Substance: SACUBITRIL\VALSARTAN
     Indication: Cardiac failure
     Dosage: 50 MG (24/26 MG), BID
     Route: 048
     Dates: start: 20210609

REACTIONS (13)
  - Tunnel vision [Not Recovered/Not Resolved]
  - Eye swelling [Recovering/Resolving]
  - Hyperhidrosis [Not Recovered/Not Resolved]
  - Limb injury [Recovering/Resolving]
  - Peripheral swelling [Not Recovered/Not Resolved]
  - Arthralgia [Not Recovered/Not Resolved]
  - Frostbite [Unknown]
  - Cyanosis [Unknown]
  - Erythema [Unknown]
  - Diarrhoea [Recovering/Resolving]
  - Fatigue [Recovering/Resolving]
  - Ejection fraction decreased [Unknown]
  - Dizziness [Recovered/Resolved]

NARRATIVE: CASE EVENT DATE: 20210609
